FAERS Safety Report 9891840 (Version 3)
Quarter: 2015Q4

REPORT INFORMATION
  Report Type: Spontaneous
  Country: US (occurrence: US)
  Receive Date: 20140212
  Receipt Date: 20151016
  Transmission Date: 20160305
  Serious: Yes (Hospitalization, Other)
  Sender: FDA-Public Use
  Company Number: US-BAYER-2014-022009

PATIENT
  Age: 24 Year
  Sex: Female

DRUGS (2)
  1. DIAMOX SEQUELS [Concomitant]
     Active Substance: ACETAZOLAMIDE
  2. MIRENA [Suspect]
     Active Substance: LEVONORGESTREL
     Indication: CONTRACEPTION
     Dosage: 20 MCG/24HR, CONT
     Route: 015
     Dates: start: 20080911, end: 20111201

REACTIONS (9)
  - Loss of consciousness [None]
  - Vision blurred [None]
  - Intracranial pressure increased [None]
  - Injury [None]
  - Migraine [None]
  - Nausea [None]
  - Pain [None]
  - Papilloedema [None]
  - Benign intracranial hypertension [None]

NARRATIVE: CASE EVENT DATE: 20111201
